FAERS Safety Report 14872192 (Version 1)
Quarter: 2018Q2

REPORT INFORMATION
  Report Type: Not Available
  Country: US (occurrence: US)
  Receive Date: 20180509
  Receipt Date: 20180509
  Transmission Date: 20180711
  Serious: No
  Sender: FDA-Public Use
  Company Number: US-NEUROCRINE BIOSCIENCES INC.-2018NBI01239

PATIENT
  Age: 58 Year
  Sex: Female
  Weight: 70.37 kg

DRUGS (1)
  1. INGREZZA [Suspect]
     Active Substance: VALBENAZINE
     Indication: MOVEMENT DISORDER
     Route: 048
     Dates: start: 20180415

REACTIONS (5)
  - Drooling [Unknown]
  - Headache [Unknown]
  - Anxiety [Unknown]
  - Drug ineffective [None]
  - Weight increased [Unknown]

NARRATIVE: CASE EVENT DATE: 201804
